FAERS Safety Report 24636469 (Version 2)
Quarter: 2024Q4

REPORT INFORMATION
  Report Type: Spontaneous
  Country: US (occurrence: US)
  Receive Date: 20241119
  Receipt Date: 20241218
  Transmission Date: 20250114
  Serious: Yes (Hospitalization)
  Sender: TEVA
  Company Number: US-TEVA-VS-3264977

PATIENT
  Age: 58 Year
  Sex: Male

DRUGS (1)
  1. PANTOPRAZOLE [Suspect]
     Active Substance: PANTOPRAZOLE
     Indication: Drug therapy
     Route: 065

REACTIONS (2)
  - Pneumonia salmonella [Recovering/Resolving]
  - Empyema [Recovering/Resolving]
